FAERS Safety Report 9274579 (Version 2)
Quarter: 2013Q2

REPORT INFORMATION
  Report Type: Spontaneous
  Country: US (occurrence: US)
  Receive Date: 20130507
  Receipt Date: 20130523
  Transmission Date: 20140414
  Serious: No
  Sender: FDA-Public Use
  Company Number: US-B.I. PHARMACEUTICALS,INC./RIDGEFIELD-2013-BI-12378BP

PATIENT
  Age: 86 Year
  Sex: Female
  Weight: 60 kg

DRUGS (10)
  1. SPIRIVA [Suspect]
     Indication: DYSPNOEA
     Dosage: 18 MCG
     Route: 055
     Dates: start: 201211
  2. ACTONEL [Concomitant]
  3. LEVOTHYROXINE [Concomitant]
     Route: 048
  4. LEVOTHYROXINE [Concomitant]
     Dosage: 75 MG
     Route: 048
     Dates: start: 1994
  5. ADVIL PM [Concomitant]
  6. CALTRATE [Concomitant]
  7. SIMVASTATIN [Concomitant]
     Dosage: 40 MG
     Dates: start: 1993
  8. ASPIRIN [Concomitant]
     Dosage: 81 MG
     Route: 048
     Dates: start: 1998
  9. CENTRUM SILVER [Concomitant]
     Dosage: 1 ANZ
     Route: 048
     Dates: start: 1998
  10. LEXAPRO [Concomitant]
     Dosage: 40 MG
     Route: 048
     Dates: start: 1993

REACTIONS (2)
  - Throat irritation [Not Recovered/Not Resolved]
  - Swollen tongue [Not Recovered/Not Resolved]
